FAERS Safety Report 9457313 (Version 1)
Quarter: 2013Q3

REPORT INFORMATION
  Report Type: Report from Study
  Country: MX (occurrence: MX)
  Receive Date: 20130814
  Receipt Date: 20130814
  Transmission Date: 20140515
  Serious: Yes (Other)
  Sender: FDA-Public Use
  Company Number: PHHY2013MX027261

PATIENT
  Age: 71 Year
  Sex: Male

DRUGS (3)
  1. CO-DIOVAN [Suspect]
     Indication: HYPERTENSION
     Dosage: 1 DF (160 MG VALS/25 MG HYDRO), DAILY
     Route: 048
     Dates: start: 20110207
  2. METFORMIN [Concomitant]
     Indication: DIABETES MELLITUS
     Dosage: 1 DF, DAILY
  3. INSULIN [Concomitant]
     Indication: DIABETES MELLITUS
     Dosage: 1 DF, DAILY

REACTIONS (5)
  - Deafness [Not Recovered/Not Resolved]
  - Bradykinesia [Unknown]
  - Mutism [Unknown]
  - Depressed mood [Unknown]
  - Lethargy [Unknown]
